FAERS Safety Report 6345573-7 (Version None)
Quarter: 2009Q3

REPORT INFORMATION
  Report Type: 
  Country: None (occurrence: None)
  Receive Date: 20090909
  Receipt Date: 20090828
  Transmission Date: 20100115
  Serious: Yes (Hospitalization, Other)
  Sender: FDA-Public Use
  Company Number: JP-PFIZER INC-2009235672

PATIENT
  Age: 57 Year

DRUGS (10)
  1. UNASYN [Suspect]
     Indication: BACTERIAL INFECTION
     Dosage: 1.5 G, 4X/DAY
     Route: 042
     Dates: start: 20090522, end: 20090529
  2. UNASYN [Suspect]
     Indication: SEPSIS
  3. UNASYN [Suspect]
     Indication: VIRAL INFECTION
  4. PYRINAZIN [Suspect]
     Indication: PYREXIA
     Dosage: 0.5 G, POW
     Route: 048
     Dates: start: 20090512, end: 20090521
  5. ALLEGRA [Concomitant]
     Dosage: UNK
     Route: 048
     Dates: start: 20090512, end: 20090525
  6. CLARITHROMYCIN [Concomitant]
     Dosage: UNK
     Route: 048
     Dates: start: 20090512, end: 20090521
  7. MUCOSTA [Concomitant]
     Dosage: UNK
     Route: 048
     Dates: start: 20090512, end: 20090521
  8. MUCOSOLVAN [Concomitant]
     Dosage: UNK
     Route: 048
     Dates: start: 20090512, end: 20090521
  9. LIGHTGEN T [Concomitant]
     Dosage: UNK
     Route: 048
     Dates: start: 20090512, end: 20090521
  10. TWINPAL [Concomitant]
     Dosage: UNK
     Route: 042
     Dates: start: 20090522, end: 20090529

REACTIONS (1)
  - IDIOPATHIC THROMBOCYTOPENIC PURPURA [None]
